FAERS Safety Report 8232669-8 (Version None)
Quarter: 2012Q1

REPORT INFORMATION
  Report Type: 
  Country: None (occurrence: None)
  Receive Date: 20120323
  Receipt Date: 20120313
  Transmission Date: 20120608
  Serious: Yes (Hospitalization)
  Sender: FDA-Public Use
  Company Number: NO-FRI-1000026208

PATIENT
  Age: 69 Year
  Sex: Male

DRUGS (8)
  1. VENTOLIN [Concomitant]
     Indication: CHRONIC OBSTRUCTIVE PULMONARY DISEASE
     Dosage: 5 MG/ML FOUR TIMES DAILY
     Route: 055
  2. SIMVASTATIN [Concomitant]
     Indication: ARTERIOSCLEROSIS
     Dosage: 20 MG
     Route: 048
  3. NUELIN DEPOT [Concomitant]
     Indication: ASTHMA
     Dosage: 700 MG
     Route: 048
  4. PENICILLIN [Suspect]
     Indication: PNEUMONIA
     Dosage: 12 G
     Route: 040
     Dates: start: 20111105, end: 20111114
  5. ASPIRIN AND DIPYRIDAMOLE [Concomitant]
     Indication: CEREBRAL INFARCTION
     Dosage: 2 DF
     Route: 048
  6. ATROVENT [Concomitant]
     Indication: CHRONIC OBSTRUCTIVE PULMONARY DISEASE
     Route: 055
  7. PREDNISOLONE [Concomitant]
     Indication: CHRONIC OBSTRUCTIVE PULMONARY DISEASE
     Dosage: 40 MG DAILY TAPERING
     Route: 048
  8. ESCITALOPRAM [Suspect]
     Indication: DEPRESSION
     Dosage: 10 MG
     Dates: start: 20111109, end: 20111114

REACTIONS (2)
  - NEUTROPENIA [None]
  - LEUKOPENIA [None]
